FAERS Safety Report 8557426-4 (Version None)
Quarter: 2012Q3

REPORT INFORMATION
  Report Type: 
  Country: None (occurrence: None)
  Receive Date: 20120801
  Receipt Date: 20120730
  Transmission Date: 20120928
  Serious: Yes (Death, Hospitalization, Other)
  Sender: FDA-Public Use
  Company Number: US-ELI_LILLY_AND_COMPANY-US201207006241

PATIENT
  Sex: Male
  Weight: 76.19 kg

DRUGS (15)
  1. ALIMTA [Suspect]
     Indication: LUNG NEOPLASM MALIGNANT
     Dosage: UNK, UNKNOWN
     Route: 042
     Dates: start: 20120405
  2. MUCINEX [Concomitant]
     Dosage: UNK, UNKNOWN
     Route: 065
  3. COMPAZINE [Concomitant]
     Dosage: UNK, UNKNOWN
     Route: 065
  4. VITAMIN B-12 [Concomitant]
     Dosage: 1000 MG, UNKNOWN
     Route: 065
     Dates: start: 20120323
  5. SIMVASTATIN [Concomitant]
     Dosage: UNK, UNKNOWN
     Route: 065
  6. TYLENOL                                 /SCH/ [Concomitant]
     Dosage: UNK, UNKNOWN
     Route: 065
  7. XOPENEX HFA [Concomitant]
     Dosage: UNK, UNKNOWN
     Route: 065
  8. COUMADIN [Concomitant]
     Dosage: UNK, UNKNOWN
     Route: 065
  9. SPIRIVA [Concomitant]
     Dosage: UNK, UNKNOWN
     Route: 065
  10. NAPROXEN [Concomitant]
     Dosage: UNK, UNKNOWN
     Route: 065
  11. PROMETHAZINE [Concomitant]
     Dosage: UNK, UNKNOWN
     Route: 065
  12. DECADRON [Concomitant]
     Dosage: UNK, UNKNOWN
     Route: 065
     Dates: start: 20120404
  13. PREDNISONE [Concomitant]
     Dosage: UNK, UNKNOWN
     Route: 065
  14. HYDROCODONE [Concomitant]
     Dosage: UNK, UNKNOWN
     Route: 065
  15. FOLIC ACID [Concomitant]
     Dosage: UNK, UNKNOWN
     Route: 065
     Dates: start: 20120323

REACTIONS (5)
  - METASTASES TO CENTRAL NERVOUS SYSTEM [None]
  - NON-SMALL CELL LUNG CANCER [None]
  - NEOPLASM PROGRESSION [None]
  - HOSPITALISATION [None]
  - PLEURAL EFFUSION [None]
